FAERS Safety Report 4283290-8 (Version None)
Quarter: 2004Q1

REPORT INFORMATION
  Report Type: 
  Country: None (occurrence: None)
  Receive Date: 20040129
  Receipt Date: 20040120
  Transmission Date: 20041129
  Serious: Yes (Death, Hospitalization, Other)
  Sender: FDA-Public Use
  Company Number: 2003119513

PATIENT
  Age: 64 Year
  Sex: Male
  Weight: 80 kg

DRUGS (6)
  1. FLUCONAZOLE [Suspect]
     Indication: LUNG INFECTION
     Dosage: 800MG (BID), ORAL
     Route: 048
     Dates: start: 20031030, end: 20031111
  2. VFEND [Suspect]
     Indication: HEPATOSPLENIC CANDIDIASIS
     Dates: start: 20030101
  3. CEFTAZIDIME PENTAHYDRATE (CEFTAZIDIME PENTAHYDRATE) [Suspect]
     Indication: PNEUMONIA
     Dosage: 6 GRAM (DAILY),INTRAVENOUS
     Route: 042
     Dates: start: 20031022, end: 20031109
  4. VANCOMYCIN HCL [Suspect]
     Indication: PNEUMONIA STAPHYLOCOCCAL
     Dosage: 3 GRAM (DAILY), INTRAVENOUS
     Route: 042
     Dates: start: 20031022, end: 20031107
  5. AMIKACIN [Suspect]
     Indication: PNEUMONIA
     Dosage: 1500 MG (DAILY), INTRAVENOUS
     Route: 042
     Dates: start: 20031022, end: 20031107
  6. GANCICLOVIR SODIUM [Suspect]
     Indication: PNEUMONIA VIRAL
     Dosage: 800 MG (BID), INTRAVENOUS
     Route: 042
     Dates: start: 20031027, end: 20031105

REACTIONS (5)
  - BLOOD BILIRUBIN INCREASED [None]
  - HEPATOSPLENIC CANDIDIASIS [None]
  - HEPATOTOXICITY [None]
  - JAUNDICE CHOLESTATIC [None]
  - LEUKOPENIA [None]
